FAERS Safety Report 14919313 (Version 6)
Quarter: 2020Q3

REPORT INFORMATION
  Report Type: Report from Study
  Country: ES (occurrence: ES)
  Receive Date: 20180521
  Receipt Date: 20181005
  Transmission Date: 20201105
  Serious: Yes (Hospitalization)
  Sender: FDA-Public Use
  Company Number: ES-JNJFOC-20180509620

PATIENT
  Age: 48 Year
  Sex: Female
  Weight: 49 kg

DRUGS (10)
  1. IBRUTINIB [Suspect]
     Active Substance: IBRUTINIB
     Indication: B-CELL LYMPHOMA
     Route: 048
     Dates: start: 20180430, end: 20180506
  2. BISOPROLOL [Concomitant]
     Active Substance: BISOPROLOL
     Indication: SHONE COMPLEX
     Route: 048
  3. MIDAZOLAM HYDROCHLORIDE. [Suspect]
     Active Substance: MIDAZOLAM HYDROCHLORIDE
     Indication: B-CELL LYMPHOMA
     Dosage: DOSE: 2??FREQUENCY: ONCE
     Route: 048
     Dates: start: 20180425, end: 20180430
  4. IBRUTINIB [Suspect]
     Active Substance: IBRUTINIB
     Route: 048
  5. BUPROPION. [Suspect]
     Active Substance: BUPROPION
     Indication: B-CELL LYMPHOMA
     Dosage: DOSE: 75??FREQUENCY: ONCE
     Route: 048
     Dates: start: 20180425, end: 20180425
  6. SYMBICORT [Concomitant]
     Active Substance: BUDESONIDE\FORMOTEROL FUMARATE DIHYDRATE
     Indication: SEASONAL ALLERGY
     Dosage: DOSE UNIT : SPRAY
     Route: 055
     Dates: end: 201805
  7. PARACETAMOL [Concomitant]
     Active Substance: ACETAMINOPHEN
     Indication: COUGH
     Route: 048
     Dates: start: 201804, end: 201804
  8. LOVENOX [Concomitant]
     Active Substance: ENOXAPARIN SODIUM
     Indication: SHONE COMPLEX
     Route: 058
     Dates: start: 20180410
  9. ETHINYLESTRADIOL W/LEVONORGESTREL [Suspect]
     Active Substance: ETHINYL ESTRADIOL\LEVONORGESTREL
     Indication: B-CELL LYMPHOMA
     Dosage: DOSE: 1??FREQUENCY: ONCE
     Route: 048
     Dates: start: 20180423, end: 20180423
  10. ATENOLOL. [Concomitant]
     Active Substance: ATENOLOL
     Indication: VENTRICULAR TACHYCARDIA
     Route: 042
     Dates: start: 201805, end: 201805

REACTIONS (1)
  - Muscle haemorrhage [Recovered/Resolved]

NARRATIVE: CASE EVENT DATE: 20180506
